FAERS Safety Report 20327854 (Version 1)
Quarter: 2022Q1

REPORT INFORMATION
  Report Type: Spontaneous
  Country: US (occurrence: None)
  Receive Date: 20220111
  Receipt Date: 20220111
  Transmission Date: 20220423
  Serious: No
  Sender: FDA-Public Use
  Company Number: None

PATIENT
  Age: 50 Year
  Sex: Female
  Weight: 72.9 kg

DRUGS (22)
  1. CAPECITABINE [Suspect]
     Active Substance: CAPECITABINE
     Indication: Breast cancer
     Dosage: OTHER FREQUENCY : BID FOR 14/21 DAYS;?
     Route: 048
     Dates: start: 20211110
  2. Hydrocodone-Acetaminophen 7.5-325mg [Concomitant]
  3. Lidocaine-Prilocaine 2.5-2.5% [Concomitant]
  4. Potassium chloride 20mEq/15mL [Concomitant]
  5. CETIRIZINE [Concomitant]
     Active Substance: CETIRIZINE HYDROCHLORIDE
  6. LEVOTHYROXINE [Concomitant]
     Active Substance: LEVOTHYROXINE
  7. EXEMESTANE [Concomitant]
     Active Substance: EXEMESTANE
  8. GABAPAL [Concomitant]
     Active Substance: GABAPENTIN\LIDOCAINE HYDROCHLORIDE
  9. LORATADINE [Concomitant]
     Active Substance: LORATADINE
  10. LOSARTAN [Concomitant]
     Active Substance: LOSARTAN
  11. AMLODIPINE [Concomitant]
     Active Substance: AMLODIPINE BESYLATE
  12. DICLOFENAC SODIUM [Concomitant]
     Active Substance: DICLOFENAC SODIUM
  13. VITAMINS [Concomitant]
     Active Substance: VITAMINS
  14. LEXAPRO [Concomitant]
     Active Substance: ESCITALOPRAM OXALATE
  15. Viactiv [Concomitant]
  16. MONTELUKAST [Concomitant]
     Active Substance: MONTELUKAST SODIUM
  17. BACLOFEN [Concomitant]
     Active Substance: BACLOFEN
  18. NaCl 500mL [Concomitant]
  19. Ondansetron 8mg/4mL [Concomitant]
  20. Morphine sulfate 2mg/ml [Concomitant]
  21. ZOLPIDEM TARTRATE [Concomitant]
     Active Substance: ZOLPIDEM TARTRATE
  22. Acetaminophen 1000mg [Concomitant]

REACTIONS (1)
  - Diarrhoea [None]

NARRATIVE: CASE EVENT DATE: 20220111
